FAERS Safety Report 13344253 (Version 6)
Quarter: 2017Q3

REPORT INFORMATION
  Report Type: Report from Study
  Country: CO (occurrence: CO)
  Receive Date: 20170317
  Receipt Date: 20170705
  Transmission Date: 20171127
  Serious: Yes (Death, Hospitalization)
  Sender: FDA-Public Use
  Company Number: CO-ROCHE-1906616

PATIENT
  Age: 74 Year
  Sex: Female

DRUGS (1)
  1. MABTHERA [Suspect]
     Active Substance: RITUXIMAB
     Indication: NON-HODGKIN^S LYMPHOMA
     Route: 042
     Dates: start: 20170113, end: 20170224

REACTIONS (4)
  - Death [Fatal]
  - Respiratory failure [Unknown]
  - Bacteraemia [Recovered/Resolved]
  - Cardiotoxicity [Unknown]

NARRATIVE: CASE EVENT DATE: 201704
